FAERS Safety Report 9264984 (Version 1)
Quarter: 2013Q2

REPORT INFORMATION
  Report Type: Spontaneous
  Country: US (occurrence: None)
  Receive Date: 20130430
  Receipt Date: 20130430
  Transmission Date: 20140414
  Serious: Yes (Other)
  Sender: FDA-Public Use
  Company Number: None

PATIENT
  Age: 43 Year
  Sex: Female

DRUGS (1)
  1. VENLAFAXINE ER [Suspect]
     Indication: BIPOLAR II DISORDER
     Dosage: IN AM
     Route: 048
     Dates: start: 20090325, end: 20090408

REACTIONS (5)
  - Product substitution issue [None]
  - Agitation [None]
  - Dysphemia [None]
  - Headache [None]
  - Economic problem [None]
